FAERS Safety Report 7829023-7 (Version None)
Quarter: 2011Q4

REPORT INFORMATION
  Report Type: 
  Country: None (occurrence: None)
  Receive Date: 20111020
  Receipt Date: 20111013
  Transmission Date: 20120403
  Serious: Yes (Hospitalization)
  Sender: FDA-Public Use
  Company Number: DE-BAYER-2011-100185

PATIENT
  Sex: Male

DRUGS (1)
  1. ASPIRIN COMPLEX GRANULAT [Suspect]
     Dosage: UNK
     Dates: start: 20111011

REACTIONS (1)
  - HYPERSENSITIVITY [None]
